FAERS Safety Report 7118612-3 (Version None)
Quarter: 2010Q4

REPORT INFORMATION
  Report Type: 
  Country: None (occurrence: None)
  Receive Date: 20101123
  Receipt Date: 20101110
  Transmission Date: 20110411
  Serious: Yes (Hospitalization)
  Sender: FDA-Public Use
  Company Number: CZ-ELI_LILLY_AND_COMPANY-CZ201010001685

PATIENT
  Age: 52 Year
  Sex: Female
  Weight: 82 kg

DRUGS (10)
  1. ZYPREXA [Suspect]
     Indication: BIPOLAR DISORDER
     Dosage: 20 MG, DAILY (1/D)
     Route: 048
     Dates: start: 20070101, end: 20100924
  2. ORFIRIL [Concomitant]
     Indication: BIPOLAR DISORDER
     Dosage: 300 MG, TOTAL DAILY DOSE
     Route: 048
  3. ARIPIPRAZOLE [Concomitant]
     Dosage: 15 MG, DAILY (1/D)
  4. ATORVASTATIN [Concomitant]
     Dosage: 10 MG, DAILY (1/D)
  5. RAMIPRIL [Concomitant]
     Dosage: 15 MG, DAILY (1/D)
  6. HYDROCHLOROTHIAZIDE [Concomitant]
     Dosage: 25 MG, DAILY (1/D)
  7. AMLODIPINE [Concomitant]
     Dosage: 20 MG, 2/D
  8. PENTOXIFYLLINE [Concomitant]
     Dosage: 400 MG, DAILY (1/D)
  9. METOPROLOL [Concomitant]
     Dosage: 25 MG, 2/D
  10. ACETYLSALICYLIC ACID [Concomitant]
     Dosage: 100 MG, DAILY (1/D)

REACTIONS (3)
  - BIPOLAR DISORDER [None]
  - DIPLOPIA [None]
  - ISCHAEMIC STROKE [None]
